FAERS Safety Report 5789594-1 (Version None)
Quarter: 2008Q2

REPORT INFORMATION
  Report Type: 
  Country: None (occurrence: None)
  Receive Date: 20080626
  Receipt Date: 20080617
  Transmission Date: 20081010
  Serious: Yes (Other)
  Sender: FDA-Public Use
  Company Number: CA-ABBOTT-08P-028-0458555-00

PATIENT
  Sex: Female
  Weight: 63.56 kg

DRUGS (1)
  1. HUMIRA [Suspect]
     Indication: CROHN'S DISEASE
     Route: 058
     Dates: start: 20080307, end: 20080418

REACTIONS (4)
  - ARTHRALGIA [None]
  - JOINT SWELLING [None]
  - LUPUS-LIKE SYNDROME [None]
  - SYSTEMIC LUPUS ERYTHEMATOSUS [None]
